FAERS Safety Report 26127658 (Version 3)
Quarter: 2025Q4

REPORT INFORMATION
  Report Type: Report from Study
  Country: EU (occurrence: EU)
  Receive Date: 20251206
  Receipt Date: 20251222
  Transmission Date: 20260118
  Serious: Yes (Other)
  Sender: NOVARTIS
  Company Number: EU-002147023-NVSC2025DE186717

PATIENT
  Sex: Female

DRUGS (3)
  1. KISQALI [Suspect]
     Active Substance: RIBOCICLIB SUCCINATE
     Indication: Hormone receptor positive HER2 negative breast cancer
     Dosage: 400 MG, QD, (TOTAL DAILY DOSE), 21 DAYS DAILY INTAKE, 7 DAYS PAUSE
     Route: 048
     Dates: start: 20251030, end: 20251126
  2. KISQALI [Suspect]
     Active Substance: RIBOCICLIB SUCCINATE
     Dosage: 400 MG, QD, (TOTAL DAILY DOSE), 21 DAYS DAILY INTAKE, 7 DAYS PAUSE
     Route: 048
     Dates: start: 20251204
  3. LETROZOLE [Suspect]
     Active Substance: LETROZOLE
     Indication: Hormone receptor positive HER2 negative breast cancer
     Dosage: 2.5 MG, QD
     Route: 048
     Dates: start: 20251030

REACTIONS (3)
  - Neutropenia [Recovering/Resolving]
  - Renal failure [Not Recovered/Not Resolved]
  - Cardiac failure [Recovered/Resolved]

NARRATIVE: CASE EVENT DATE: 20251111
